FAERS Safety Report 9628739 (Version 1)
Quarter: 2013Q4

REPORT INFORMATION
  Report Type: Spontaneous
  Country: US (occurrence: US)
  Receive Date: 20131017
  Receipt Date: 20131017
  Transmission Date: 20140711
  Serious: Yes (Other)
  Sender: FDA-Public Use
  Company Number: US-JNJFOC-20131006834

PATIENT
  Age: 67 Year
  Sex: Male
  Weight: 92.99 kg

DRUGS (1)
  1. REMICADE [Suspect]
     Indication: PSORIATIC ARTHROPATHY
     Dosage: APPROXIMATELY 7.5MG/KG
     Route: 042
     Dates: start: 200312

REACTIONS (1)
  - Basal cell carcinoma [Unknown]
